FAERS Safety Report 7943098-6 (Version None)
Quarter: 2011Q4

REPORT INFORMATION
  Report Type: 
  Country: None (occurrence: None)
  Receive Date: 20111128
  Receipt Date: 20111115
  Transmission Date: 20120403
  Serious: Yes (Other)
  Sender: FDA-Public Use
  Company Number: PHHY2011CO10690

PATIENT
  Age: 30 Year
  Sex: Female

DRUGS (2)
  1. SANDOSTATIN LAR [Suspect]
     Indication: ACROMEGALY
     Dosage: 30 MG, QMO
     Route: 030
     Dates: start: 20030501
  2. SANDOSTATIN LAR [Suspect]
     Dosage: 30 MG, QMO
     Dates: start: 20111015

REACTIONS (6)
  - FATIGUE [None]
  - DYSAESTHESIA [None]
  - PARAESTHESIA [None]
  - NORMAL NEWBORN [None]
  - PLACENTAL INSUFFICIENCY [None]
  - MATERNAL EXPOSURE DURING PREGNANCY [None]
